FAERS Safety Report 14194096 (Version 1)
Quarter: 2017Q4

REPORT INFORMATION
  Report Type: Report from Study
  Country: BR (occurrence: BR)
  Receive Date: 20171116
  Receipt Date: 20171116
  Transmission Date: 20180321
  Serious: Yes (Other)
  Sender: FDA-Public Use
  Company Number: PHHY2017BR168056

PATIENT
  Sex: Female
  Weight: 46 kg

DRUGS (1)
  1. EXELON PATCH [Suspect]
     Active Substance: RIVASTIGMINE
     Indication: DEMENTIA ALZHEIMER^S TYPE
     Dosage: 13.3 MG, QD PATCH 15 (CM2)
     Route: 062
     Dates: start: 201507

REACTIONS (7)
  - Weight decreased [Recovering/Resolving]
  - Product adhesion issue [Unknown]
  - Dysarthria [Recovering/Resolving]
  - Application site erythema [Recovered/Resolved]
  - Scratch [Unknown]
  - Ischaemic stroke [Not Recovered/Not Resolved]
  - Hypophagia [Recovering/Resolving]

NARRATIVE: CASE EVENT DATE: 2017
